FAERS Safety Report 4582006-5 (Version None)
Quarter: 2005Q1

REPORT INFORMATION
  Report Type: 
  Country: None (occurrence: None)
  Receive Date: 20050119
  Receipt Date: 20040625
  Transmission Date: 20050727
  Serious: Yes (Hospitalization)
  Sender: FDA-Public Use
  Company Number: A03200402154

PATIENT
  Age: 76 Year
  Sex: Male
  Weight: 83.9154 kg

DRUGS (6)
  1. PLAVIX [Suspect]
     Indication: STENT PLACEMENT
     Dosage: 75 MG QD - ORAL
     Route: 048
     Dates: start: 20030601
  2. PLAVIX [Suspect]
     Indication: TRANSIENT ISCHAEMIC ATTACK
     Dosage: 75 MG QD - ORAL
     Route: 048
     Dates: start: 20030601
  3. ATENOLOL [Concomitant]
  4. ENALAPRIL MALEATE [Concomitant]
  5. TAMSULOSIN HYDROCHLORIDE [Concomitant]
  6. WARFARIN SODIUM [Concomitant]

REACTIONS (4)
  - ATRIAL FIBRILLATION [None]
  - DRUG INEFFECTIVE [None]
  - LOSS OF CONSCIOUSNESS [None]
  - VITREOUS FLOATERS [None]
